FAERS Safety Report 9723520 (Version 2)
Quarter: 2014Q2

REPORT INFORMATION
  Report Type: Report from Study
  Country: IN (occurrence: IN)
  Receive Date: 20131202
  Receipt Date: 20140612
  Transmission Date: 20141212
  Serious: Yes (Hospitalization)
  Sender: FDA-Public Use
  Company Number: IN-NOVOPROD-393962

PATIENT
  Age: 67 Year
  Sex: Female
  Weight: 53 kg

DRUGS (2)
  1. LIRAGLUTIDE FLEXPEN [Suspect]
     Indication: TYPE 2 DIABETES MELLITUS
     Dosage: 1.2,MG,QD
     Route: 058
     Dates: start: 20110928, end: 20131106
  2. ATORVASTATIN [Concomitant]
     Dosage: UNK
     Dates: start: 201004

REACTIONS (1)
  - Cholangitis acute [Not Recovered/Not Resolved]
